FAERS Safety Report 24267357 (Version 1)
Quarter: 2024Q3

REPORT INFORMATION
  Report Type: Spontaneous
  Country: IT (occurrence: IT)
  Receive Date: 20240830
  Receipt Date: 20240830
  Transmission Date: 20241017
  Serious: Yes (Disabling)
  Sender: RANBAXY
  Company Number: IT-SUN PHARMACEUTICAL INDUSTRIES LTD-2024RR-464915

PATIENT
  Age: 20 Year
  Sex: Male
  Weight: 72 kg

DRUGS (1)
  1. FINASTERIDE [Suspect]
     Active Substance: FINASTERIDE
     Indication: Product used for unknown indication
     Dosage: UNK
     Route: 048
     Dates: start: 20010608, end: 20060710

REACTIONS (4)
  - Loss of libido [Not Recovered/Not Resolved]
  - Hypogonadism [Not Recovered/Not Resolved]
  - Confusional state [Not Recovered/Not Resolved]
  - Spermatozoa abnormal [Not Recovered/Not Resolved]

NARRATIVE: CASE EVENT DATE: 20030101
